FAERS Safety Report 17631625 (Version 1)
Quarter: 2020Q2

REPORT INFORMATION
  Report Type: Report from Study
  Country: US (occurrence: US)
  Receive Date: 20200406
  Receipt Date: 20200406
  Transmission Date: 20200713
  Serious: No
  Sender: FDA-Public Use
  Company Number: NVSC2017US005687

PATIENT
  Sex: Male

DRUGS (2)
  1. TIMOLOL. [Suspect]
     Active Substance: TIMOLOL
     Dosage: UNK
     Route: 047
     Dates: start: 20121226, end: 20170303
  2. TIMOLOL. [Suspect]
     Active Substance: TIMOLOL
     Indication: INTRAOCULAR PRESSURE INCREASED
     Dosage: UNK
     Route: 047
     Dates: start: 20121212, end: 20170303

REACTIONS (1)
  - Treatment failure [Unknown]
